FAERS Safety Report 14313219 (Version 1)
Quarter: 2017Q4

REPORT INFORMATION
  Report Type: Spontaneous
  Country: US (occurrence: US)
  Receive Date: 20171220
  Receipt Date: 20171220
  Transmission Date: 20180321
  Serious: No
  Sender: FDA-Public Use
  Company Number: None

PATIENT
  Sex: Female
  Weight: 69.75 kg

DRUGS (21)
  1. MODAFANIL [Concomitant]
     Active Substance: MODAFINIL
  2. FLUCONAZOLE. [Concomitant]
     Active Substance: FLUCONAZOLE
  3. CIPROFLOXACIN. [Concomitant]
     Active Substance: CIPROFLOXACIN
  4. LIDOCAINE. [Concomitant]
     Active Substance: LIDOCAINE
  5. IBRANCE [Suspect]
     Active Substance: PALBOCICLIB
     Indication: BREAST DISORDER
     Route: 048
  6. PRAVASTATIN. [Concomitant]
     Active Substance: PRAVASTATIN
  7. ASPIR LOW [Concomitant]
     Active Substance: ASPIRIN
  8. XALATAN [Concomitant]
     Active Substance: LATANOPROST
  9. FOLIC ACID. [Concomitant]
     Active Substance: FOLIC ACID
  10. CLARINEX D [Concomitant]
  11. CANDESARTAN. [Concomitant]
     Active Substance: CANDESARTAN
  12. LYRICA [Concomitant]
     Active Substance: PREGABALIN
  13. SUCRALFATE. [Concomitant]
     Active Substance: SUCRALFATE
  14. PERCOCET [Concomitant]
     Active Substance: ACETAMINOPHEN\OXYCODONE HYDROCHLORIDE
  15. VALACYCLOVIR [Concomitant]
     Active Substance: VALACYCLOVIR HYDROCHLORIDE
  16. FIORICET/CODEINE [Concomitant]
  17. VOLTAREN [Concomitant]
     Active Substance: DICLOFENAC SODIUM
  18. CYMBALTA [Concomitant]
     Active Substance: DULOXETINE HYDROCHLORIDE
  19. BIOFREEZE [Concomitant]
     Active Substance: MENTHOL
  20. MYRBETRIQ [Concomitant]
     Active Substance: MIRABEGRON
  21. FERROUS GLUCONATE [Concomitant]
     Active Substance: FERROUS GLUCONATE

REACTIONS (1)
  - Drug ineffective [None]
